FAERS Safety Report 11908646 (Version 7)
Quarter: 2016Q3

REPORT INFORMATION
  Report Type: Report from Study
  Country: US (occurrence: US)
  Receive Date: 20160111
  Receipt Date: 20160711
  Transmission Date: 20161109
  Serious: No
  Sender: FDA-Public Use
  Company Number: PHEH2016US000853

PATIENT
  Age: 37 Year
  Sex: Female
  Weight: 96.16 kg

DRUGS (3)
  1. BIOTIN [Concomitant]
     Active Substance: BIOTIN
     Indication: PRODUCT USED FOR UNKNOWN INDICATION
     Dosage: UNK
     Route: 065
  2. GILENYA [Suspect]
     Active Substance: FINGOLIMOD HYDROCHLORIDE
     Indication: MULTIPLE SCLEROSIS
     Dosage: 0.5 MG, QD
     Route: 048
     Dates: start: 20160107
  3. MULTI VITAMIN [Concomitant]
     Active Substance: VITAMINS
     Indication: PRODUCT USED FOR UNKNOWN INDICATION
     Dosage: UNK, QD
     Route: 048

REACTIONS (10)
  - Weight increased [Not Recovered/Not Resolved]
  - Somnolence [Unknown]
  - Oropharyngeal pain [Unknown]
  - Multiple sclerosis relapse [Recovered/Resolved]
  - Dizziness [Recovered/Resolved]
  - Influenza like illness [Unknown]
  - Vision blurred [Recovered/Resolved]
  - Headache [Recovered/Resolved]
  - Asthenia [Unknown]
  - Disturbance in attention [Recovered/Resolved]

NARRATIVE: CASE EVENT DATE: 20160107
